FAERS Safety Report 14682978 (Version 2)
Quarter: 2018Q2

REPORT INFORMATION
  Report Type: Spontaneous
  Country: US (occurrence: US)
  Receive Date: 20180327
  Receipt Date: 20180402
  Transmission Date: 20180711
  Serious: No
  Sender: FDA-Public Use
  Company Number: US-TEVA-2018-US-867244

PATIENT
  Sex: Male

DRUGS (1)
  1. GUAIFENESIN W/ DEXTROMETHORPHAN [Suspect]
     Active Substance: DEXTROMETHORPHAN\GUAIFENESIN
     Dosage: GUAIFENESIN 1200 MG, DEXTROMETHORPHAN HYDROBROMIDE 60 MG
     Route: 065

REACTIONS (3)
  - Tinnitus [Unknown]
  - Head discomfort [Unknown]
  - Drug ineffective [Unknown]
